FAERS Safety Report 4402078-8 (Version None)
Quarter: 2004Q3

REPORT INFORMATION
  Report Type: 
  Country: None (occurrence: None)
  Receive Date: 20040719
  Receipt Date: 20040719
  Transmission Date: 20050211
  Serious: Yes (Other)
  Sender: FDA-Public Use
  Company Number: None

PATIENT
  Sex: Female
  Weight: 112.4921 kg

DRUGS (4)
  1. EFFEXOR XR [Suspect]
     Indication: DEPRESSION
     Dosage: 3 ONCE A DAY
     Dates: start: 20020301, end: 20040630
  2. EFFEXOR XR [Suspect]
     Dosage: 1 ONCE A DAY
     Dates: start: 20040701, end: 20040718
  3. LITHIUM [Concomitant]
  4. DEPAKOTE [Concomitant]

REACTIONS (12)
  - AGGRESSION [None]
  - ANXIETY [None]
  - ASTHENIA [None]
  - CONFUSIONAL STATE [None]
  - DISTURBANCE IN ATTENTION [None]
  - FEELING ABNORMAL [None]
  - IMPAIRED WORK ABILITY [None]
  - IRRITABILITY [None]
  - MEMORY IMPAIRMENT [None]
  - NAUSEA [None]
  - PAIN [None]
  - VERTIGO [None]
